FAERS Safety Report 14236037 (Version 1)
Quarter: 2017Q4

REPORT INFORMATION
  Report Type: Report from Study
  Country: US (occurrence: US)
  Receive Date: 20171129
  Receipt Date: 20171129
  Transmission Date: 20180321
  Serious: Yes (Other)
  Sender: FDA-Public Use
  Company Number: PHEH2017US038113

PATIENT
  Age: 64 Year
  Sex: Female
  Weight: 77.11 kg

DRUGS (1)
  1. COSENTYX [Suspect]
     Active Substance: SECUKINUMAB
     Indication: PRODUCT USED FOR UNKNOWN INDICATION
     Dosage: 300 MG/KG, QMO
     Route: 065
     Dates: start: 20170130, end: 20171002

REACTIONS (3)
  - Malaise [Unknown]
  - Drug hypersensitivity [Unknown]
  - Inappropriate schedule of drug administration [Unknown]

NARRATIVE: CASE EVENT DATE: 20170130
